FAERS Safety Report 6493494-1 (Version None)
Quarter: 2009Q4

REPORT INFORMATION
  Report Type: 
  Country: None (occurrence: None)
  Receive Date: 20091214
  Receipt Date: 20091201
  Transmission Date: 20100525
  Serious: Yes (Hospitalization)
  Sender: FDA-Public Use
  Company Number: CA-ELI_LILLY_AND_COMPANY-CA200909005323

PATIENT
  Sex: Female

DRUGS (12)
  1. FORTEO [Suspect]
     Indication: OSTEOPOROSIS
     Dosage: 20 UG, DAILY (1/D)
     Route: 058
     Dates: start: 20080730, end: 20090716
  2. PREDNISONE TAB [Concomitant]
  3. ALDACTONE [Concomitant]
  4. LASIX [Concomitant]
  5. PANTOLOC                           /01263201/ [Concomitant]
  6. VITAMIN D [Concomitant]
  7. SENOKOT [Concomitant]
  8. SERAX [Concomitant]
  9. MORPHINE [Concomitant]
  10. LYRICA [Concomitant]
  11. FOSAVANCE [Concomitant]
  12. LENALIDOMIDE [Concomitant]
     Dates: start: 20090701, end: 20090722

REACTIONS (7)
  - AMYLOIDOSIS [None]
  - ASTHENIA [None]
  - BALANCE DISORDER [None]
  - CARDIAC DISORDER [None]
  - DRUG INTOLERANCE [None]
  - FALL [None]
  - THROMBOPHLEBITIS [None]
